FAERS Safety Report 10069862 (Version 2)
Quarter: 2014Q2

REPORT INFORMATION
  Report Type: Spontaneous
  Country: US (occurrence: US)
  Receive Date: 20140410
  Receipt Date: 20140411
  Transmission Date: 20141212
  Serious: Yes (Hospitalization, Other)
  Sender: FDA-Public Use
  Company Number: US-PFIZER INC-2014099554

PATIENT
  Sex: Male

DRUGS (1)
  1. SERTRALINE HCL [Suspect]
     Dosage: UNK

REACTIONS (3)
  - Chest pain [Unknown]
  - Blood pressure increased [Unknown]
  - Hypersensitivity [Unknown]
